APPROVED DRUG PRODUCT: VUSION
Active Ingredient: MICONAZOLE NITRATE; WHITE PETROLATUM; ZINC OXIDE
Strength: 0.25%;81.35%;15%
Dosage Form/Route: OINTMENT;TOPICAL
Application: N021026 | Product #001
Applicant: MYLAN PHARMACEUTICALS INC
Approved: Feb 16, 2006 | RLD: Yes | RS: Yes | Type: RX

PATENTS:
Patent 8147852 | Expires: Mar 30, 2028